FAERS Safety Report 9016517 (Version 3)
Quarter: 2013Q1

REPORT INFORMATION
  Report Type: Report from Study
  Country: DE (occurrence: DE)
  Receive Date: 20130116
  Receipt Date: 20130321
  Transmission Date: 20140127
  Serious: Yes (Hospitalization)
  Sender: FDA-Public Use
  Company Number: DE-ABBOTT-13P-062-1035158-00

PATIENT
  Age: 34 Year
  Sex: Male
  Weight: 60 kg

DRUGS (2)
  1. HUMIRA [Suspect]
     Indication: CROHN^S DISEASE
     Dosage: 80 MG ON 11 DEC 2012; 40 MG ON 18 DEC 2012
     Route: 050
     Dates: start: 20121211
  2. HUMIRA [Suspect]

REACTIONS (4)
  - Abscess intestinal [Recovered/Resolved]
  - Perirectal abscess [Recovered/Resolved]
  - Proctalgia [Unknown]
  - Pyrexia [Unknown]
